FAERS Safety Report 8658317 (Version 1)
Quarter: 2020Q3

REPORT INFORMATION
  Report Type: Spontaneous
  Country: None (occurrence: ES)
  Receive Date: 20120710
  Receipt Date: 20120710
  Transmission Date: 20201105
  Serious: Yes (Other)
  Sender: FDA-Public Use
  Company Number: ES-ROCHE-1070245

PATIENT
  Age: 61 Year
  Sex: Female

DRUGS (2)
  1. RISEDRONIC ACID [Suspect]
     Active Substance: RISEDRONIC ACID
     Indication: OSTEOPOROSIS
     Route: 048
     Dates: start: 200706, end: 200902
  2. IBANDRONIC ACID. [Suspect]
     Active Substance: IBANDRONIC ACID
     Indication: OSTEOPOROSIS
     Dates: start: 200902

REACTIONS (4)
  - Osteosclerosis [Recovering/Resolving]
  - Osteonecrosis of jaw [Recovering/Resolving]
  - Exposed bone in jaw [Recovering/Resolving]
  - Oral discomfort [Recovering/Resolving]

NARRATIVE: CASE EVENT DATE: 20090901
